FAERS Safety Report 4711410-7 (Version None)
Quarter: 2005Q3

REPORT INFORMATION
  Report Type: 
  Country: None (occurrence: None)
  Receive Date: 20050711
  Receipt Date: 20050629
  Transmission Date: 20060218
  Serious: Yes (Other)
  Sender: FDA-Public Use
  Company Number: 2005095526

PATIENT
  Age: 46 Year
  Sex: Female
  Weight: 56.6996 kg

DRUGS (2)
  1. ZOLOFT [Suspect]
     Indication: ANXIETY
     Dosage: 100 MG (100 MG, 1 IN 1 D), ORAL
     Route: 048
     Dates: start: 20030201
  2. TRAZODONE(TRAZODONE) [Concomitant]

REACTIONS (6)
  - DIARRHOEA [None]
  - ECONOMIC PROBLEM [None]
  - GASTROINTESTINAL DISORDER [None]
  - THYROID FUNCTION TEST ABNORMAL [None]
  - TREATMENT NONCOMPLIANCE [None]
  - WEIGHT INCREASED [None]
